FAERS Safety Report 16907641 (Version 2)
Quarter: 2019Q4

REPORT INFORMATION
  Report Type: Spontaneous
  Country: US (occurrence: US)
  Receive Date: 20191011
  Receipt Date: 20191014
  Transmission Date: 20200122
  Serious: No
  Sender: FDA-Public Use
  Company Number: US-GILEAD-2019-0432488

PATIENT
  Age: 28 Year
  Sex: Male

DRUGS (3)
  1. SOFOSBUVIR;VELPATASVIR [Suspect]
     Active Substance: SOFOSBUVIR\VELPATASVIR
     Indication: CHRONIC HEPATITIS C
     Dosage: 1 DOSAGE FORM, QD
     Route: 048
     Dates: start: 20190918
  2. CREATINE [Concomitant]
     Active Substance: CREATINE
  3. PROTEIN [Concomitant]
     Active Substance: PROTEIN

REACTIONS (3)
  - Decreased appetite [Not Recovered/Not Resolved]
  - Anxiety [Not Recovered/Not Resolved]
  - Product dose omission [Recovered/Resolved]
